FAERS Safety Report 12171178 (Version 1)
Quarter: 2016Q1

REPORT INFORMATION
  Report Type: Spontaneous
  Country: US (occurrence: US)
  Receive Date: 20160311
  Receipt Date: 20160311
  Transmission Date: 20160526
  Serious: Yes (Hospitalization)
  Sender: FDA-Public Use
  Company Number: US-BAYER-2016-042365

PATIENT
  Sex: Female

DRUGS (12)
  1. COUMADIN [Concomitant]
     Active Substance: WARFARIN SODIUM
  2. PROTONIX [Concomitant]
     Active Substance: PANTOPRAZOLE SODIUM
  3. MIRALAX [Suspect]
     Active Substance: POLYETHYLENE GLYCOL 3350
     Indication: CONSTIPATION
     Dosage: 1 DF, UNK
     Dates: start: 20151221
  4. ALKA SELTZER [Concomitant]
     Active Substance: ANHYDROUS CITRIC ACID\ASPIRIN\SODIUM BICARBONATE
  5. PRILOSEC [Concomitant]
     Active Substance: OMEPRAZOLE MAGNESIUM
  6. HYDROCODONE [Concomitant]
     Active Substance: HYDROCODONE
  7. LASIX [Concomitant]
     Active Substance: FUROSEMIDE
  8. NORCO [Concomitant]
     Active Substance: ACETAMINOPHEN\HYDROCODONE BITARTRATE
  9. BENZONATATE. [Concomitant]
     Active Substance: BENZONATATE
  10. ADVIL [Concomitant]
     Active Substance: IBUPROFEN
  11. MIRALAX [Suspect]
     Active Substance: POLYETHYLENE GLYCOL 3350
     Indication: CONSTIPATION
     Dosage: UNK, QD
     Dates: start: 20151221, end: 20151221
  12. ATIVAN [Concomitant]
     Active Substance: LORAZEPAM

REACTIONS (14)
  - Fall [None]
  - Faeces discoloured [None]
  - Melaena [None]
  - Abnormal faeces [None]
  - Product use issue [None]
  - Fall [None]
  - Dyspepsia [Recovered/Resolved]
  - Faeces discoloured [Recovered/Resolved]
  - Off label use [None]
  - Faeces hard [None]
  - Diarrhoea [Recovered/Resolved]
  - Nausea [Recovered/Resolved]
  - Drug ineffective [None]
  - Oxygen saturation decreased [None]

NARRATIVE: CASE EVENT DATE: 201512
